FAERS Safety Report 25956212 (Version 1)
Quarter: 2025Q4

REPORT INFORMATION
  Report Type: Other
  Country: CH (occurrence: CH)
  Receive Date: 20251024
  Receipt Date: 20251024
  Transmission Date: 20260119
  Serious: Yes (Other)
  Sender: NOVITIUM PHARMA
  Company Number: CH-NOVITIUM PHARMA-000166

PATIENT
  Age: 36 Year
  Sex: Male

DRUGS (1)
  1. PREDNISONE [Suspect]
     Active Substance: PREDNISONE
     Indication: Vasculitis

REACTIONS (2)
  - Detachment of retinal pigment epithelium [Recovered/Resolved]
  - Acute macular neuroretinopathy [Recovered/Resolved]
